FAERS Safety Report 6659038-6 (Version None)
Quarter: 2010Q1

REPORT INFORMATION
  Report Type: 
  Country: None (occurrence: None)
  Receive Date: 20100330
  Receipt Date: 20100323
  Transmission Date: 20100710
  Serious: Yes (Hospitalization)
  Sender: FDA-Public Use
  Company Number: SK-WYE-H14158110

PATIENT
  Age: 80 Year
  Sex: Female

DRUGS (6)
  1. AMIODARONE HCL [Suspect]
     Indication: ATRIAL TACHYCARDIA
     Route: 048
     Dates: start: 20061001, end: 20090808
  2. XANAX [Concomitant]
  3. ANOPYRIN [Concomitant]
  4. NOOTROPIL [Concomitant]
  5. AMLODIPINE [Concomitant]
  6. CONCOR [Concomitant]

REACTIONS (1)
  - INTERSTITIAL LUNG DISEASE [None]
